FAERS Safety Report 9434254 (Version 1)
Quarter: 2013Q3

REPORT INFORMATION
  Report Type: Spontaneous
  Country: BR (occurrence: BR)
  Receive Date: 20130801
  Receipt Date: 20130801
  Transmission Date: 20140515
  Serious: Yes (Other)
  Sender: FDA-Public Use
  Company Number: PHHY2013BR080325

PATIENT
  Age: 57 Year
  Sex: Female
  Weight: 48 kg

DRUGS (2)
  1. DIOVAN [Suspect]
     Indication: HYPERTENSION
     Dosage: 1 DF, QD (IN THE MORNING)
     Route: 048
  2. RIVOTRIL [Suspect]
     Dosage: 1 DF, QD (AT NIGHT)
     Route: 048

REACTIONS (6)
  - Haemoptysis [Recovered/Resolved]
  - Blood pressure increased [Recovered/Resolved]
  - Tremor [Recovered/Resolved]
  - Vision blurred [Recovered/Resolved]
  - Nervousness [Recovered/Resolved]
  - Crying [Recovered/Resolved]
